FAERS Safety Report 20570583 (Version 8)
Quarter: 2024Q1

REPORT INFORMATION
  Report Type: Spontaneous
  Country: US (occurrence: US)
  Receive Date: 20220309
  Receipt Date: 20240216
  Transmission Date: 20240409
  Serious: Yes (Disabling, Other)
  Sender: FDA-Public Use
  Company Number: US-ORGANON-O2203USA000761

PATIENT
  Sex: Female
  Weight: 63.946 kg

DRUGS (2)
  1. SINGULAIR [Suspect]
     Active Substance: MONTELUKAST SODIUM
     Dosage: UNK
     Route: 048
     Dates: start: 2000, end: 2019
  2. SINGULAIR [Suspect]
     Active Substance: MONTELUKAST SODIUM
     Indication: Hypersensitivity
     Dosage: UNK
     Route: 048
     Dates: start: 2019

REACTIONS (17)
  - Neuropsychological symptoms [Not Recovered/Not Resolved]
  - Generalised anxiety disorder [Not Recovered/Not Resolved]
  - Arrhythmia [Unknown]
  - Tricuspid valve disease [Unknown]
  - Chest pain [Recovered/Resolved]
  - Panic attack [Not Recovered/Not Resolved]
  - Lung disorder [Unknown]
  - Anxiety [Recovering/Resolving]
  - Dyspnoea [Recovered/Resolved]
  - Hypoaesthesia [Recovered/Resolved]
  - Dizziness [Recovered/Resolved]
  - Palpitations [Recovered/Resolved]
  - Cough [Unknown]
  - Anxiety [Recovered/Resolved]
  - Hyperlipidaemia [Unknown]
  - Dyspnoea [Unknown]
  - Nightmare [Unknown]

NARRATIVE: CASE EVENT DATE: 20150101
